FAERS Safety Report 18585891 (Version 2)
Quarter: 2020Q4

REPORT INFORMATION
  Report Type: Spontaneous
  Country: JP (occurrence: JP)
  Receive Date: 20201207
  Receipt Date: 20201230
  Transmission Date: 20210114
  Serious: Yes (Other)
  Sender: FDA-Public Use
  Company Number: JP-MYLANLABS-2020M1099515

PATIENT
  Age: 14 Year
  Sex: Male

DRUGS (4)
  1. TREPROSTINIL. [Suspect]
     Active Substance: TREPROSTINIL
     Dosage: INFUSION ADMINISTERED AT 5MG/ML AT AN INFUSION RATE OF 1.1ML/HOUR
     Route: 058
  2. ACETAMINOPHEN. [Suspect]
     Active Substance: ACETAMINOPHEN
     Indication: INFUSION SITE PAIN
     Dosage: ADMINISTERED AT MAXIMUM DOSES
     Route: 048
  3. NAPROXEN. [Suspect]
     Active Substance: NAPROXEN
     Indication: INFUSION SITE PAIN
     Dosage: ADMINISTERED AT MAXIMUM DOSES
     Route: 048
  4. TREPROSTINIL. [Suspect]
     Active Substance: TREPROSTINIL
     Indication: PULMONARY ARTERIAL HYPERTENSION
     Dosage: INFUSION ADMINISTERED AT 2.5MG/ML AT AN INFUSION RATE OF 2.2ML/HOUR
     Route: 058

REACTIONS (1)
  - Drug ineffective [Unknown]
